FAERS Safety Report 7099037-6 (Version None)
Quarter: 2010Q4

REPORT INFORMATION
  Report Type: 
  Country: None (occurrence: None)
  Receive Date: 20101112
  Receipt Date: 20101029
  Transmission Date: 20110411
  Serious: Yes (Hospitalization, Other)
  Sender: FDA-Public Use
  Company Number: PHHY2010JP73236

PATIENT
  Sex: Female

DRUGS (6)
  1. AFINITOR [Suspect]
     Indication: METASTATIC RENAL CELL CARCINOMA
     Dosage: 10 MG, DAILY
     Route: 048
     Dates: start: 20100730, end: 20100805
  2. AFINITOR [Suspect]
     Dosage: 5 MG,DAILY
     Route: 048
     Dates: start: 20100812, end: 20100823
  3. INTERFERON ALFA [Concomitant]
     Dosage: 9000000 IU, UNK
     Dates: start: 20060901
  4. INTERFERON ALFA [Concomitant]
     Dosage: 6000000 IU, UNK
     Dates: start: 20100701
  5. TECELEUKIN [Concomitant]
     Dosage: 1400000 IU, UNK
     Dates: start: 20070701, end: 20081001
  6. SUNITINIB MALATE [Concomitant]
     Dosage: 50 MG, UNK
     Route: 048
     Dates: start: 20090101, end: 20100701

REACTIONS (3)
  - MALAISE [None]
  - MALIGNANT NEOPLASM PROGRESSION [None]
  - PLATELET COUNT DECREASED [None]
